FAERS Safety Report 8879868 (Version 2)
Quarter: 2013Q1

REPORT INFORMATION
  Report Type: Spontaneous
  Country: JP (occurrence: JP)
  Receive Date: 20121101
  Receipt Date: 20130103
  Transmission Date: 20140127
  Serious: Yes (Death)
  Sender: FDA-Public Use
  Company Number: JP-009507513-1210JPN011156

PATIENT
  Age: 79 Year
  Sex: Female

DRUGS (16)
  1. GLACTIV [Suspect]
     Indication: TYPE 2 DIABETES MELLITUS
     Dosage: 50 MG, QD
     Route: 048
     Dates: start: 20120727, end: 20120831
  2. GLUFAST [Suspect]
     Indication: TYPE 2 DIABETES MELLITUS
     Dosage: 5 MG, BID
     Route: 048
     Dates: start: 20120821, end: 20120831
  3. POLARAMINE (DEXCHLORPHENIRAMINE MALEATE) [Concomitant]
     Dosage: 2 MG, QD
     Dates: start: 20120821, end: 20120831
  4. PAXIL [Concomitant]
  5. AMOXAN [Concomitant]
  6. SOLANAX [Concomitant]
  7. TETRAMIDE [Concomitant]
  8. CONTOMIN [Concomitant]
     Dosage: UNK
     Dates: start: 20120720
  9. LENDORMIN [Concomitant]
  10. ROHYPNOL [Concomitant]
  11. REMERON [Concomitant]
     Dosage: UNK
     Route: 048
     Dates: start: 20120720, end: 20120728
  12. LACTEC [Concomitant]
     Dosage: 500 ML, UNK
     Dates: start: 20120728
  13. ALLEGRA [Concomitant]
     Dosage: UNK
     Dates: start: 20120731
  14. CLARITIN [Concomitant]
     Dosage: UNK
     Route: 048
     Dates: start: 20120804, end: 20120811
  15. ZITHROMAC [Concomitant]
     Dosage: UNK
     Dates: start: 20120813
  16. XYLITOL [Concomitant]
     Dosage: UNK
     Dates: start: 20120813

REACTIONS (1)
  - Cholestasis [Fatal]
